FAERS Safety Report 11180960 (Version 1)
Quarter: 2015Q2

REPORT INFORMATION
  Report Type: Spontaneous
  Country: US (occurrence: None)
  Receive Date: 20150610
  Receipt Date: 20150610
  Transmission Date: 20150821
  Serious: No
  Sender: FDA-Public Use
  Company Number: None

PATIENT
  Age: 72 Year
  Sex: Female
  Weight: 51.26 kg

DRUGS (9)
  1. TYLENOL [Concomitant]
     Active Substance: ACETAMINOPHEN
  2. EYE VIT. [Concomitant]
  3. VITAMIN D [Concomitant]
     Active Substance: CHOLECALCIFEROL
  4. COQ10 [Concomitant]
     Active Substance: UBIDECARENONE
  5. TURMERIC [Concomitant]
     Active Substance: TURMERIC
  6. MULTIPLE VIT. [Concomitant]
  7. AMLODIPINE BESYLATE. [Suspect]
     Active Substance: AMLODIPINE BESYLATE
     Indication: BLOOD PRESSURE
     Dosage: BY MOUTH
     Dates: start: 201504
  8. BIOTIN [Concomitant]
     Active Substance: BIOTIN
  9. VITAMIN C [Concomitant]
     Active Substance: ASCORBIC ACID

REACTIONS (10)
  - Swelling [None]
  - Rash [None]
  - Hypoaesthesia [None]
  - Reaction to drug excipients [None]
  - Dyspnoea [None]
  - Tongue disorder [None]
  - Hypoaesthesia oral [None]
  - Pharyngeal disorder [None]
  - Middle insomnia [None]
  - Product quality issue [None]
